FAERS Safety Report 9989166 (Version 1)
Quarter: 2014Q1

REPORT INFORMATION
  Report Type: Report from Study
  Country: US (occurrence: US)
  Receive Date: 20140310
  Receipt Date: 20140310
  Transmission Date: 20141002
  Serious: Yes (Other)
  Sender: FDA-Public Use
  Company Number: US-BAYER-2014-034591

PATIENT
  Age: 70 Year
  Sex: Male

DRUGS (1)
  1. XOFIGO [Suspect]
     Indication: PROSTATE CANCER STAGE IV
     Dosage: INFUSION

REACTIONS (5)
  - Myalgia [None]
  - Nausea [None]
  - Diarrhoea [None]
  - Vomiting [None]
  - Pain [None]
